FAERS Safety Report 5747932-X (Version None)
Quarter: 2008Q2

REPORT INFORMATION
  Report Type: 
  Country: None (occurrence: None)
  Receive Date: 20080521
  Receipt Date: 20080508
  Transmission Date: 20081010
  Serious: Yes (Other)
  Sender: FDA-Public Use
  Company Number: CTI_00970_2008

PATIENT
  Sex: Female

DRUGS (1)
  1. ZYFLO CR [Suspect]
     Indication: DRUG USE FOR UNKNOWN INDICATION
     Dosage: DF

REACTIONS (3)
  - DYSPNOEA [None]
  - FEELING ABNORMAL [None]
  - PRURITUS [None]
